FAERS Safety Report 15836707 (Version 2)
Quarter: 2025Q3

REPORT INFORMATION
  Report Type: Spontaneous
  Country: UA (occurrence: UA)
  Receive Date: 20190117
  Receipt Date: 20250911
  Transmission Date: 20251021
  Serious: Yes (Death, Life-Threatening, Other)
  Sender: AUROBINDO
  Company Number: UA-AUROBINDO-AUR-APL-2019-000465

PATIENT
  Age: 12 Day

DRUGS (9)
  1. MEROPENEM [Suspect]
     Active Substance: MEROPENEM
     Indication: Sepsis neonatal
     Dosage: 120 MILLIGRAM/KILOGRAM, ONCE A DAY
     Route: 065
  2. MEROPENEM [Suspect]
     Active Substance: MEROPENEM
     Indication: Sepsis neonatal
  3. AMIKACIN [Suspect]
     Active Substance: AMIKACIN
     Indication: Sepsis neonatal
     Dosage: 15 MILLIGRAM/KILOGRAM, ONCE A DAY
     Route: 065
  4. AMPICILLIN [Suspect]
     Active Substance: AMPICILLIN
     Indication: Sepsis neonatal
     Dosage: 150 MILLIGRAM/KILOGRAM, ONCE A DAY
     Route: 065
  5. FLUCONAZOLE [Suspect]
     Active Substance: FLUCONAZOLE
     Indication: Sepsis neonatal
     Dosage: 12 MILLIGRAM/KILOGRAM, ONCE A DAY
     Route: 065
  6. METRONIDAZOLE [Suspect]
     Active Substance: METRONIDAZOLE
     Indication: Sepsis neonatal
     Dosage: 15 MILLIGRAM/KILOGRAM, ONCE A DAY
     Route: 065
  7. PENTOXIFYLLINE [Concomitant]
     Active Substance: PENTOXIFYLLINE
     Indication: Colony stimulating factor therapy
     Route: 065
  8. PENTAGLOBIN [Concomitant]
     Active Substance: HUMAN IMMUNOGLOBULIN G
     Indication: Immunisation
     Route: 065
  9. Fenamin [Concomitant]
     Indication: Analgesic therapy
     Dosage: 5 MILLIGRAM/KILOGRAM, EVERY HOUR
     Route: 065

REACTIONS (1)
  - Drug ineffective [Fatal]
